FAERS Safety Report 6290610-1 (Version None)
Quarter: 2009Q3

REPORT INFORMATION
  Report Type: 
  Country: None (occurrence: None)
  Receive Date: 20090727
  Receipt Date: 20080626
  Transmission Date: 20100115
  Serious: Yes (Life-Threatening, Hospitalization)
  Sender: FDA-Public Use
  Company Number: OMPQ-PR-0806S-0420

PATIENT
  Sex: Male

DRUGS (1)
  1. OMNIPAQUE 300 [Suspect]
     Indication: HAEMATURIA
     Dosage: 140 ML, SINGLE DOSE, I.V.
     Route: 042
     Dates: start: 20080624, end: 20080624

REACTIONS (1)
  - HYPERSENSITIVITY [None]
